FAERS Safety Report 24192488 (Version 2)
Quarter: 2024Q3

REPORT INFORMATION
  Report Type: Report from Study
  Country: RO (occurrence: RO)
  Receive Date: 20240809
  Receipt Date: 20240917
  Transmission Date: 20241016
  Serious: Yes (Death, Other)
  Sender: ROCHE
  Company Number: RO-ROCHE-10000046450

PATIENT
  Age: 48 Year
  Sex: Male
  Weight: 88 kg

DRUGS (2)
  1. GLOFITAMAB [Suspect]
     Active Substance: GLOFITAMAB
     Indication: Primary mediastinal large B-cell lymphoma
     Route: 065
     Dates: start: 20230926
  2. OBINUTUZUMAB [Suspect]
     Active Substance: OBINUTUZUMAB
     Indication: Primary mediastinal large B-cell lymphoma
     Route: 065
     Dates: start: 20230918

REACTIONS (3)
  - Clostridium difficile infection [Unknown]
  - Pneumonia [Unknown]
  - Sepsis [Fatal]
